FAERS Safety Report 8064129-1 (Version None)
Quarter: 2012Q1

REPORT INFORMATION
  Report Type: 
  Country: None (occurrence: None)
  Receive Date: 20120123
  Receipt Date: 20120117
  Transmission Date: 20120608
  Serious: Yes (Other)
  Sender: FDA-Public Use
  Company Number: JP-GLAXOSMITHKLINE-B0767969A

PATIENT
  Age: 77 Year
  Sex: Male

DRUGS (1)
  1. FLUTICASONE PROPIONATE/SALMETEROL [Suspect]
     Indication: ASTHMA
     Dosage: 500MCG PER DAY
     Route: 055

REACTIONS (2)
  - ASTHMA [None]
  - OROPHARYNGEAL DISCOMFORT [None]
